FAERS Safety Report 10109785 (Version 2)
Quarter: 2014Q2

REPORT INFORMATION
  Report Type: Spontaneous
  Country: CN (occurrence: None)
  Receive Date: 20140423
  Receipt Date: 20140606
  Transmission Date: 20141212
  Serious: Yes (Hospitalization)
  Sender: FDA-Public Use
  Company Number: 7283701

PATIENT
  Age: 38 Year
  Sex: Male

DRUGS (1)
  1. EUTHYROX 50 MCG [Suspect]
     Indication: HYPOTHYROIDISM
     Route: 048
     Dates: start: 201302

REACTIONS (4)
  - Rheumatic heart disease [None]
  - Dizziness [None]
  - Fatigue [None]
  - Asthenia [None]
